FAERS Safety Report 7251209-3 (Version None)
Quarter: 2011Q1

REPORT INFORMATION
  Report Type: 
  Country: None (occurrence: None)
  Receive Date: 20110128
  Receipt Date: 20110121
  Transmission Date: 20110831
  Serious: Yes (Other)
  Sender: FDA-Public Use
  Company Number: US-US-EMD SERONO, INC.-7038031

PATIENT
  Sex: Female

DRUGS (4)
  1. REBIF [Suspect]
     Indication: MULTIPLE SCLEROSIS
     Route: 058
     Dates: start: 20100729
  2. NEURONTIN [Concomitant]
     Indication: MULTIPLE SCLEROSIS
  3. NEXIUM [Concomitant]
     Indication: GASTROOESOPHAGEAL REFLUX DISEASE
  4. BACLOFEN [Concomitant]
     Indication: MULTIPLE SCLEROSIS

REACTIONS (9)
  - PALPITATIONS [None]
  - HYPERHIDROSIS [None]
  - LUNG NEOPLASM [None]
  - WEIGHT DECREASED [None]
  - ANXIETY [None]
  - BLOOD POTASSIUM DECREASED [None]
  - INFLUENZA LIKE ILLNESS [None]
  - ADRENAL MASS [None]
  - BLOOD CHOLESTEROL INCREASED [None]
